FAERS Safety Report 4374164-2 (Version None)
Quarter: 2004Q2

REPORT INFORMATION
  Report Type: 
  Country: None (occurrence: None)
  Receive Date: 20040607
  Receipt Date: 20020516
  Transmission Date: 20050107
  Serious: Yes (Death, Hospitalization)
  Sender: FDA-Public Use
  Company Number: US-MERCK-0205USA01984

PATIENT
  Age: 64 Year
  Sex: Male
  Weight: 131 kg

DRUGS (9)
  1. [THERAPY UNSPECIFIED] [Concomitant]
     Route: 065
     Dates: start: 19960601
  2. VICODIN ES [Concomitant]
     Indication: PAIN
     Route: 065
  3. ZESTRIL [Concomitant]
     Indication: HYPERTENSION
     Route: 065
  4. VIOXX [Suspect]
     Indication: MONARTHRITIS
     Route: 048
     Dates: start: 20000801, end: 20010119
  5. VIOXX [Suspect]
     Route: 048
     Dates: start: 20010801
  6. VIOXX [Suspect]
     Indication: BACK PAIN
     Route: 048
     Dates: start: 20000801, end: 20010119
  7. VIOXX [Suspect]
     Route: 048
     Dates: start: 20010801
  8. RESTORIL [Concomitant]
     Indication: SLEEP DISORDER THERAPY
     Route: 065
  9. COUMADIN [Concomitant]
     Route: 048
     Dates: start: 20010219, end: 20010228

REACTIONS (25)
  - ATHEROSCLEROSIS [None]
  - BENIGN PROSTATIC HYPERPLASIA [None]
  - BUNDLE BRANCH BLOCK LEFT [None]
  - CARDIAC ARREST [None]
  - CARDIAC FAILURE CONGESTIVE [None]
  - CELLULITIS [None]
  - CHRONIC OBSTRUCTIVE AIRWAYS DISEASE [None]
  - CONFUSION POSTOPERATIVE [None]
  - CONSTIPATION [None]
  - COR PULMONALE [None]
  - DILATATION ATRIAL [None]
  - DILATATION VENTRICULAR [None]
  - DUODENAL ULCER HAEMORRHAGE [None]
  - DUODENITIS [None]
  - GASTRIC ULCER [None]
  - LOCALISED OSTEOARTHRITIS [None]
  - OESOPHAGITIS [None]
  - ONYCHOMYCOSIS [None]
  - PERICARDIAL EFFUSION [None]
  - PLEURAL EFFUSION [None]
  - POLYTRAUMATISM [None]
  - RASH [None]
  - RESTRICTIVE PULMONARY DISEASE [None]
  - RIB FRACTURE [None]
  - VITREOUS FLOATERS [None]
